FAERS Safety Report 9801820 (Version 1)
Quarter: 2014Q1

REPORT INFORMATION
  Report Type: Spontaneous
  Country: US (occurrence: US)
  Receive Date: 20140107
  Receipt Date: 20140107
  Transmission Date: 20141002
  Serious: Yes (Death)
  Sender: FDA-Public Use
  Company Number: US-BAYER-2014-002364

PATIENT
  Age: 20 Year
  Sex: Male

DRUGS (8)
  1. DIPHENHYDRAMINE HYDROCHLORIDE [Suspect]
     Route: 065
  2. METHADONE [Suspect]
     Route: 065
  3. OXYCODONE [Suspect]
     Route: 065
  4. MORPHINE [Suspect]
     Route: 065
  5. CLONAZEPAM [Suspect]
     Route: 065
  6. COCAINE [Suspect]
     Route: 065
  7. CITALOPRAM [Suspect]
     Route: 065
  8. ACETAMINOPHEN [Suspect]
     Route: 065

REACTIONS (1)
  - Drug abuse [Fatal]
